FAERS Safety Report 13739568 (Version 1)
Quarter: 2017Q3

REPORT INFORMATION
  Report Type: Spontaneous
  Country: FR (occurrence: FR)
  Receive Date: 20170710
  Receipt Date: 20170710
  Transmission Date: 20171127
  Serious: Yes (Hospitalization)
  Sender: FDA-Public Use
  Company Number: FR-ASTRAZENECA-2017SE70702

PATIENT
  Age: 28325 Day
  Sex: Female

DRUGS (5)
  1. LASILIX FAIBLE [Concomitant]
     Active Substance: FUROSEMIDE
     Route: 048
  2. ARIMIDEX [Suspect]
     Active Substance: ANASTROZOLE
     Indication: BREAST CANCER FEMALE
     Route: 048
     Dates: start: 2014
  3. ALDACTONE [Concomitant]
     Active Substance: SPIRONOLACTONE
     Dates: start: 20170427, end: 20170516
  4. INEXIUM [Concomitant]
     Active Substance: ESOMEPRAZOLE
     Route: 048
  5. CACIT VITAMINE D3 [Concomitant]
     Active Substance: CALCIUM CARBONATE\CHOLECALCIFEROL

REACTIONS (1)
  - Ischaemic stroke [Recovered/Resolved]

NARRATIVE: CASE EVENT DATE: 20170517
